FAERS Safety Report 8350930-3 (Version None)
Quarter: 2012Q2

REPORT INFORMATION
  Report Type: 
  Country: None (occurrence: None)
  Receive Date: 20120510
  Receipt Date: 20120507
  Transmission Date: 20120825
  Serious: Yes (Other)
  Sender: FDA-Public Use
  Company Number: KR-PFIZER INC-2012100386

PATIENT
  Age: 57 Year
  Sex: Male

DRUGS (6)
  1. ZIPRASIDONE HYDROCHLORIDE [Suspect]
     Indication: DEPRESSION
     Dosage: 80 MG, UNK
     Route: 048
     Dates: start: 19970101
  2. ZIPRASIDONE HYDROCHLORIDE [Suspect]
     Dosage: 80 MG, UNK
     Route: 048
  3. EFFEXOR XR [Suspect]
     Dosage: 75 MG, UNK
     Route: 048
  4. ZIPRASIDONE HYDROCHLORIDE [Suspect]
     Dosage: 40 MG, UNK
     Route: 048
  5. EFFEXOR XR [Suspect]
     Indication: DEPRESSION
     Dosage: 75 MG, UNK
     Route: 048
     Dates: start: 19970101
  6. EFFEXOR XR [Suspect]
     Dosage: 37.5 MG, UNK
     Route: 048

REACTIONS (6)
  - RETINAL DEGENERATION [None]
  - VISION BLURRED [None]
  - OCULAR DISCOMFORT [None]
  - EYE DISORDER [None]
  - AGE-RELATED MACULAR DEGENERATION [None]
  - EYE PAIN [None]
